FAERS Safety Report 9621276 (Version 1)
Quarter: 2013Q4

REPORT INFORMATION
  Report Type: Spontaneous
  Country: FR (occurrence: FR)
  Receive Date: 20131015
  Receipt Date: 20131015
  Transmission Date: 20140711
  Serious: Yes (Hospitalization)
  Sender: FDA-Public Use
  Company Number: FR-JNJFOC-20131007618

PATIENT
  Age: 72 Year
  Sex: Male

DRUGS (1)
  1. TOPALGIC [Suspect]
     Indication: PAIN
     Route: 048

REACTIONS (2)
  - Disturbance in attention [Unknown]
  - Drug ineffective [Unknown]
